FAERS Safety Report 4307191-1 (Version None)
Quarter: 2004Q1

REPORT INFORMATION
  Report Type: 
  Country: None (occurrence: None)
  Receive Date: 20040226
  Receipt Date: 20040210
  Transmission Date: 20041129
  Serious: Yes (Death)
  Sender: FDA-Public Use
  Company Number: KII-2001-0003130

PATIENT
  Sex: Male

DRUGS (5)
  1. OXYCONTIN [Suspect]
     Indication: PAIN
     Dosage: 80 MG, TID
  2. VICODIN [Suspect]
     Indication: PAIN
  3. DEMEROL [Suspect]
     Indication: PAIN
  4. NARCOTA (HALOTHANE) [Suspect]
     Indication: DRUG USE FOR UNKNOWN INDICATION
  5. MUSCLE RELAXANTS [Suspect]
     Indication: DRUG USE FOR UNKNOWN INDICATION

REACTIONS (3)
  - FALL [None]
  - HIP FRACTURE [None]
  - HYPOTHERMIA [None]
